FAERS Safety Report 9225111 (Version 2)
Quarter: 2013Q4

REPORT INFORMATION
  Report Type: Spontaneous
  Country: GB (occurrence: None)
  Receive Date: 20130409
  Receipt Date: 20131204
  Transmission Date: 20140711
  Serious: Yes (Hospitalization)
  Sender: FDA-Public Use
  Company Number: NGX_01696_2013

PATIENT
  Age: 66 Year
  Sex: Female
  Weight: 55 kg

DRUGS (5)
  1. QUTENZA [Suspect]
     Indication: NEURALGIA
     Dosage: (1 DF 1X  [A PATCH] TOPICAL)
     Route: 061
     Dates: start: 20130321, end: 20130321
  2. QUTENZA [Suspect]
     Indication: SCAR PAIN
     Dosage: (1 DF 1X  [A PATCH] TOPICAL)
     Route: 061
     Dates: start: 20130321, end: 20130321
  3. OPIOIDS [Suspect]
     Indication: PRODUCT USED FOR UNKNOWN INDICATION
     Dosage: DF [REDUCED DOSAGE]
  4. FENTANYL [Concomitant]
  5. PARACETAMOL [Concomitant]

REACTIONS (6)
  - Tremor [None]
  - Application site pain [None]
  - Withdrawal syndrome [None]
  - Anxiety [None]
  - Agitation [None]
  - Malaise [None]
